FAERS Safety Report 20278958 (Version 1)
Quarter: 2022Q1

REPORT INFORMATION
  Report Type: Spontaneous
  Country: CN (occurrence: None)
  Receive Date: 20220103
  Receipt Date: 20220103
  Transmission Date: 20220423
  Serious: Yes (Other)
  Sender: FDA-Public Use
  Company Number: CN-ROCHE-2987891

PATIENT
  Sex: Female

DRUGS (5)
  1. PERJETA [Suspect]
     Active Substance: PERTUZUMAB
     Indication: Breast cancer
     Dosage: 840 MG FOR THE FIRST TIME, THEN 420 MG
     Route: 065
     Dates: start: 20190725
  2. HERCEPTIN [Suspect]
     Active Substance: TRASTUZUMAB
     Indication: Breast cancer
     Dosage: 8 MG/KG FOR THE FIRST TIME, THEN 6 MG/KG
     Route: 065
     Dates: start: 20190725
  3. PACLITAXEL [Concomitant]
     Active Substance: PACLITAXEL
     Indication: Breast cancer
     Dates: start: 20190725
  4. EPIRUBICIN [Concomitant]
     Active Substance: EPIRUBICIN
     Indication: Breast cancer
     Dates: start: 20191028
  5. CYCLOPHOSPHAMIDE [Concomitant]
     Active Substance: CYCLOPHOSPHAMIDE
     Indication: Breast cancer
     Dates: start: 20191028

REACTIONS (5)
  - Myelosuppression [Unknown]
  - Fatigue [Unknown]
  - Neurotoxicity [Unknown]
  - Gastrointestinal disorder [Unknown]
  - Ejection fraction abnormal [Unknown]
